FAERS Safety Report 8608226-8 (Version None)
Quarter: 2012Q3

REPORT INFORMATION
  Report Type: 
  Country: None (occurrence: None)
  Receive Date: 20120809
  Receipt Date: 20120809
  Transmission Date: 20120928
  Serious: Yes (Other)
  Sender: FDA-Public Use
  Company Number: None

PATIENT
  Sex: Female

DRUGS (1)
  1. TYSABRI [Suspect]
     Dosage: 300MG/15ML INFUSION EVERY 4 WEEKS
     Dates: start: 20120620, end: 20120720

REACTIONS (1)
  - RASH [None]
